FAERS Safety Report 14663459 (Version 3)
Quarter: 2018Q3

REPORT INFORMATION
  Report Type: Spontaneous
  Country: US (occurrence: US)
  Receive Date: 20180321
  Receipt Date: 20180905
  Transmission Date: 20181010
  Serious: No
  Sender: FDA-Public Use
  Company Number: US-PFIZER INC-2018114020

PATIENT
  Age: 76 Year
  Sex: Female

DRUGS (1)
  1. XELJANZ [Suspect]
     Active Substance: TOFACITINIB CITRATE
     Dosage: 5 MG, UNK
     Dates: start: 20180117

REACTIONS (3)
  - Bowel movement irregularity [Unknown]
  - Cystitis [Recovered/Resolved]
  - Faeces pale [Unknown]

NARRATIVE: CASE EVENT DATE: 2018
